FAERS Safety Report 8780466 (Version 1)
Quarter: 2012Q4

REPORT INFORMATION
  Report Type: Spontaneous
  Country: BR (occurrence: None)
  Receive Date: 20120830
  Receipt Date: 20120830
  Transmission Date: 20130627
  Serious: Yes (Disabling, Other)
  Sender: FDA-Public Use
  Company Number: NSR_00640_2012

PATIENT
  Age: 14 Year
  Sex: Male

DRUGS (4)
  1. LAMOTRIGINE (LAMOTRIGINE) [Suspect]
     Dosage: introduced slowly
  2. LAMOTRIGINE (LAMOTRIGINE) [Suspect]
  3. VALPROATE SODIUM [Suspect]
  4. CLONAZEPAM [Concomitant]

REACTIONS (8)
  - Myoclonic epilepsy [None]
  - Dysarthria [None]
  - Ataxia [None]
  - Gait disturbance [None]
  - Tremor [None]
  - Drug interaction [None]
  - Drug level decreased [None]
  - Toxicity to various agents [None]
